FAERS Safety Report 8064742-1 (Version None)
Quarter: 2012Q1

REPORT INFORMATION
  Report Type: 
  Country: None (occurrence: None)
  Receive Date: 20120124
  Receipt Date: 20120120
  Transmission Date: 20120608
  Serious: Yes (Death)
  Sender: FDA-Public Use
  Company Number: IL-ACCORD-012057

PATIENT

DRUGS (3)
  1. FLUOROURACIL [Suspect]
     Indication: GASTRIC CANCER
     Dosage: 750MG/M2/DAY AS CONTINUOUS I.V. INFUSION) ON DAYS 1-5, EVERY 3 WEEKS.
     Route: 042
  2. DOCETAXEL [Suspect]
     Indication: GASTRIC CANCER
     Dosage: 75 MG/M2 IN 1000 CM3 SALINE INTRAVENOUSLY (I.V.) OVER 1 H) ON DAY 1
     Route: 042
  3. CISPLATIN [Suspect]
     Indication: GASTRIC CANCER
     Dosage: (75MG/M2 IN 1000 CM3 SALINE I.V. OVER 90 MIN) ON DAY 1
     Route: 042

REACTIONS (2)
  - THROMBOSIS [None]
  - OFF LABEL USE [None]
